FAERS Safety Report 10193996 (Version 3)
Quarter: 2017Q2

REPORT INFORMATION
  Report Type: Spontaneous
  Country: US (occurrence: US)
  Receive Date: 20140524
  Receipt Date: 20170606
  Transmission Date: 20170829
  Serious: No
  Sender: FDA-Public Use
  Company Number: US-SANOFI-AVENTIS-2013SA074195

PATIENT
  Sex: Male

DRUGS (3)
  1. SOLOSTAR [Suspect]
     Active Substance: DEVICE
     Indication: DIABETES MELLITUS
     Dosage: HE TAKES 52 UNITS A DAY FOR THE PAST YEAR
  2. LANTUS SOLOSTAR [Suspect]
     Active Substance: INSULIN GLARGINE
     Indication: DIABETES MELLITUS
     Dosage: HE TAKES 52 UNITS A DAY FOR THE PAST YEAR DOSE:52 UNIT(S)
     Route: 051
     Dates: end: 201608
  3. KOMBIGLYZE XR [Suspect]
     Active Substance: METFORMIN HYDROCHLORIDE\SAXAGLIPTIN HYDROCHLORIDE
     Route: 065

REACTIONS (3)
  - Abnormal dreams [Unknown]
  - Device issue [Unknown]
  - Injection site pain [Unknown]
